FAERS Safety Report 5689272-3 (Version None)
Quarter: 2008Q1

REPORT INFORMATION
  Report Type: 
  Country: None (occurrence: None)
  Receive Date: 20080331
  Receipt Date: 20080318
  Transmission Date: 20080703
  Serious: Yes (Hospitalization)
  Sender: FDA-Public Use
  Company Number: US-ELI_LILLY_AND_COMPANY-US200803004379

PATIENT
  Sex: Male

DRUGS (2)
  1. FORTEO [Suspect]
     Indication: OSTEOPOROSIS
     Dates: start: 20070101, end: 20070101
  2. FORTEO [Suspect]
     Dosage: UNK, UNK
     Dates: start: 20080208

REACTIONS (8)
  - ANOREXIA [None]
  - ASTHENIA [None]
  - BLOOD CALCIUM INCREASED [None]
  - BONE PAIN [None]
  - CHOLECYSTECTOMY [None]
  - EATING DISORDER [None]
  - SLEEP DISORDER [None]
  - STOMACH DISCOMFORT [None]
